FAERS Safety Report 7126282-3 (Version None)
Quarter: 2010Q4

REPORT INFORMATION
  Report Type: 
  Country: None (occurrence: None)
  Receive Date: 20101129
  Receipt Date: 20101118
  Transmission Date: 20110411
  Serious: Yes (Hospitalization)
  Sender: FDA-Public Use
  Company Number: US-SANOFI-AVENTIS-2010SA070650

PATIENT

DRUGS (2)
  1. LOVENOX [Suspect]
     Indication: THROMBOSIS PROPHYLAXIS
     Route: 065
     Dates: start: 20101111
  2. LOVENOX [Suspect]
     Route: 065
     Dates: start: 20101111

REACTIONS (2)
  - DERMATITIS ALLERGIC [None]
  - UNEVALUABLE EVENT [None]
